FAERS Safety Report 6301569-2 (Version None)
Quarter: 2009Q3

REPORT INFORMATION
  Report Type: 
  Country: None (occurrence: None)
  Receive Date: 20090807
  Receipt Date: 20090728
  Transmission Date: 20100115
  Serious: Yes (Hospitalization, Other)
  Sender: FDA-Public Use
  Company Number: JP-PFIZER INC-2009231139

PATIENT
  Age: 46 Year

DRUGS (3)
  1. ZITHROMAX [Suspect]
     Indication: PYREXIA
     Dosage: 500 MG, 1X/DAY
     Route: 048
     Dates: start: 20090612, end: 20090614
  2. ZITHROMAX [Suspect]
     Indication: C-REACTIVE PROTEIN INCREASED
  3. SOLANAX [Concomitant]
     Dosage: UNK
     Route: 048
     Dates: start: 20050725

REACTIONS (1)
  - RHABDOMYOLYSIS [None]
